FAERS Safety Report 6349736-6 (Version None)
Quarter: 2009Q3

REPORT INFORMATION
  Report Type: 
  Country: None (occurrence: None)
  Receive Date: 20090911
  Receipt Date: 20090902
  Transmission Date: 20100115
  Serious: Yes (Other)
  Sender: FDA-Public Use
  Company Number: US-ABBOTT-09P-163-0595051-00

PATIENT
  Sex: Male
  Weight: 61.744 kg

DRUGS (8)
  1. TRICOR [Suspect]
     Indication: BLOOD CHOLESTEROL INCREASED
     Route: 048
     Dates: end: 20080201
  2. TRICOR [Suspect]
     Route: 048
     Dates: start: 20080101
  3. CADUET [Concomitant]
     Indication: DRUG USE FOR UNKNOWN INDICATION
     Dosage: 5/80MG
     Route: 048
     Dates: end: 20080201
  4. CADUET [Concomitant]
     Dosage: 5/80MG
     Route: 048
     Dates: start: 20080101
  5. ACTOS [Concomitant]
     Indication: DRUG USE FOR UNKNOWN INDICATION
     Route: 048
     Dates: end: 20080201
  6. ACTOS [Concomitant]
     Route: 048
     Dates: start: 20080101
  7. OTHER UNKNOWN MEDICATIONS [Concomitant]
     Indication: DRUG USE FOR UNKNOWN INDICATION
     Dates: start: 20080101
  8. OTHER UNKNOWN MEDICATIONS [Concomitant]
     Dates: end: 20080201

REACTIONS (2)
  - PROSTATE CANCER [None]
  - PROSTATOMEGALY [None]
